FAERS Safety Report 4319049-2 (Version None)
Quarter: 2004Q1

REPORT INFORMATION
  Report Type: 
  Country: None (occurrence: None)
  Receive Date: 20040316
  Receipt Date: 20040302
  Transmission Date: 20041129
  Serious: Yes (Hospitalization)
  Sender: FDA-Public Use
  Company Number: JP_031202248

PATIENT
  Age: 69 Year
  Sex: Female
  Weight: 62 kg

DRUGS (6)
  1. HUMALOG [Suspect]
     Indication: DIABETES MELLITUS NON-INSULIN-DEPENDENT
     Dosage: 2 U/L IN THE MORNING
     Dates: start: 20030115, end: 20030726
  2. GLYBURIDE [Concomitant]
  3. MELBIN (METFORMIN HYDROCHLORIDE) [Concomitant]
  4. LEVOTHYROXINE SODIUM [Concomitant]
  5. PURSENNID (SENNA LEAF) [Concomitant]
  6. FENOFIBRATE [Concomitant]

REACTIONS (3)
  - BILE DUCT OBSTRUCTION [None]
  - CHOLELITHIASIS [None]
  - PANCREATITIS ACUTE [None]
